FAERS Safety Report 16170860 (Version 3)
Quarter: 2019Q2

REPORT INFORMATION
  Report Type: Spontaneous
  Country: GB (occurrence: GB)
  Receive Date: 20190408
  Receipt Date: 20190514
  Transmission Date: 20190711
  Serious: Yes (Other)
  Sender: FDA-Public Use
  Company Number: GB-NOVOPROD-655491

PATIENT
  Age: 76 Year
  Sex: Male
  Weight: 82.6 kg

DRUGS (1)
  1. TRESIBA [Suspect]
     Active Substance: INSULIN DEGLUDEC
     Indication: TYPE 2 DIABETES MELLITUS
     Dosage: 120 IU, QD
     Route: 058
     Dates: start: 20190307

REACTIONS (2)
  - Blood glucose increased [Unknown]
  - Non-alcoholic steatohepatitis [Unknown]
